FAERS Safety Report 22595868 (Version 1)
Quarter: 2023Q2

REPORT INFORMATION
  Report Type: Spontaneous
  Country: US (occurrence: US)
  Receive Date: 20230613
  Receipt Date: 20230613
  Transmission Date: 20230721
  Serious: No
  Sender: FDA-Public Use
  Company Number: US-CARA THERAPEUTICS, INC.-2023-00143-US

PATIENT

DRUGS (1)
  1. KORSUVA [Suspect]
     Active Substance: DIFELIKEFALIN ACETATE
     Indication: Pruritus
     Dosage: 0.7 MILLILITER, TIW
     Route: 042
     Dates: start: 20230208, end: 20230330

REACTIONS (1)
  - Pruritus [Recovering/Resolving]
